FAERS Safety Report 9032342 (Version 1)
Quarter: 2013Q1

REPORT INFORMATION
  Report Type: Spontaneous
  Country: US (occurrence: US)
  Receive Date: 20130125
  Receipt Date: 20130125
  Transmission Date: 20140127
  Serious: Yes (Other)
  Sender: FDA-Public Use
  Company Number: US-SANOFI-AVENTIS-2013SA003372

PATIENT
  Age: 47 Year
  Sex: Male

DRUGS (1)
  1. AMBIEN CR [Suspect]
     Indication: SLEEP DISORDER
     Route: 048
     Dates: end: 20130105

REACTIONS (2)
  - Somnambulism [Recovered/Resolved]
  - Road traffic accident [Recovered/Resolved]
